FAERS Safety Report 7859801-X (Version None)
Quarter: 2011Q4

REPORT INFORMATION
  Report Type: 
  Country: None (occurrence: None)
  Receive Date: 20111027
  Receipt Date: 20111025
  Transmission Date: 20120403
  Serious: Yes (Other)
  Sender: FDA-Public Use
  Company Number: US-PFIZER INC-2011250931

PATIENT
  Sex: Male
  Weight: 90.703 kg

DRUGS (2)
  1. AMANTADINE [Concomitant]
     Indication: PARKINSON'S DISEASE
     Dosage: UNK
  2. PROTONIX [Suspect]
     Dosage: 40 MG, 1X/DAY
     Route: 048
     Dates: end: 20111001

REACTIONS (1)
  - GLUCOSE TOLERANCE IMPAIRED [None]
